FAERS Safety Report 14359611 (Version 2)
Quarter: 2018Q1

REPORT INFORMATION
  Report Type: Spontaneous
  Country: US (occurrence: US)
  Receive Date: 20180105
  Receipt Date: 20180105
  Transmission Date: 20180509
  Serious: No
  Sender: FDA-Public Use
  Company Number: -SAAVPROD-BI2016BI079901

PATIENT
  Sex: Female

DRUGS (2)
  1. RANITIDINE HYDROCHLORIDE. [Suspect]
     Active Substance: RANITIDINE HYDROCHLORIDE
     Indication: ABDOMINAL DISCOMFORT
     Dosage: ONE TABLET THREE TIMES IN ONE DAY;  FORM STRENGTH: 75 MG; FORMULATION: TABLET? ADMINISTRATION CORREC
     Route: 048
  2. RANITIDINE HYDROCHLORIDE. [Suspect]
     Active Substance: RANITIDINE HYDROCHLORIDE
     Indication: ABDOMINAL DISCOMFORT
     Dosage: ONE TABLET TWICE IN ONE DAY;  FORM STRENGTH: 150 MG; FORMULATION: TABLET? ADMINISTRATION CORRECT? NR
     Route: 048

REACTIONS (3)
  - Dyspepsia [Unknown]
  - Hyperchlorhydria [Unknown]
  - Incorrect dose administered [Unknown]
